FAERS Safety Report 4927134-7 (Version None)
Quarter: 2006Q1

REPORT INFORMATION
  Report Type: 
  Country: None (occurrence: None)
  Receive Date: 20060228
  Receipt Date: 20060222
  Transmission Date: 20060701
  Serious: Yes (Hospitalization)
  Sender: FDA-Public Use
  Company Number: US-JNJFOC-20060205333

PATIENT
  Age: 61 Year
  Sex: Female
  Weight: 65.77 kg

DRUGS (6)
  1. DURAGESIC-100 [Suspect]
     Route: 062
  2. DURAGESIC-100 [Suspect]
     Route: 062
  3. CATAPRES [Concomitant]
  4. PERCOCET [Concomitant]
  5. PERCOCET [Concomitant]
     Indication: PAIN
  6. XANAX [Concomitant]

REACTIONS (5)
  - BLOOD POTASSIUM DECREASED [None]
  - CONVULSION [None]
  - DIARRHOEA [None]
  - HYPERTENSION [None]
  - TREMOR [None]
